FAERS Safety Report 13418561 (Version 2)
Quarter: 2017Q2

REPORT INFORMATION
  Report Type: Spontaneous
  Country: US (occurrence: US)
  Receive Date: 20170406
  Receipt Date: 20170411
  Transmission Date: 20170830
  Serious: No
  Sender: FDA-Public Use
  Company Number: PHEH2017US009293

PATIENT
  Sex: Female

DRUGS (2)
  1. OXCARBAZEPINE. [Suspect]
     Active Substance: OXCARBAZEPINE
     Indication: SEIZURE
     Route: 065
  2. TRILEPTAL [Suspect]
     Active Substance: OXCARBAZEPINE
     Indication: SEIZURE
     Route: 065

REACTIONS (5)
  - Cough [Unknown]
  - Rash [Unknown]
  - Urinary tract infection [Unknown]
  - Blood sodium decreased [Unknown]
  - Amnesia [Unknown]
